FAERS Safety Report 16286954 (Version 1)
Quarter: 2019Q2

REPORT INFORMATION
  Report Type: Spontaneous
  Country: ID (occurrence: ID)
  Receive Date: 20190508
  Receipt Date: 20190508
  Transmission Date: 20190711
  Serious: Yes (Hospitalization, Other)
  Sender: FDA-Public Use
  Company Number: ID-PFIZER INC-2019193320

PATIENT
  Age: 30 Year
  Sex: Male
  Weight: 60 kg

DRUGS (5)
  1. DELAMANID [Suspect]
     Active Substance: DELAMANID
     Indication: TUBERCULOSIS
     Dosage: DAILY DOSE OF 200 (UNIT: UNKNOWN)
     Dates: start: 20180717
  2. LINEZOLID. [Suspect]
     Active Substance: LINEZOLID
     Indication: TUBERCULOSIS
     Dosage: DAILY DOSE OF 600 (UNIT: UNKNOWN)
     Dates: start: 20180717
  3. ETHIONAMIDE [Suspect]
     Active Substance: ETHIONAMIDE
     Indication: TUBERCULOSIS
     Dosage: DAILY DOSE OF 750 (UNIT: UNKNOWN)
     Dates: start: 20180717
  4. LEVOFLOXACIN. [Suspect]
     Active Substance: LEVOFLOXACIN
     Indication: TUBERCULOSIS
     Dosage: DAILY DOSE OF 750 (UNIT: UNKNOWN)
     Dates: start: 20180717
  5. CLOFAZIMINE [Suspect]
     Active Substance: CLOFAZIMINE
     Indication: TUBERCULOSIS
     Dosage: DAILY DOSE OF 100 (UNIT: UNKNOWN)
     Dates: start: 20180717

REACTIONS (7)
  - Decreased appetite [Recovered/Resolved]
  - Leukocytosis [Unknown]
  - Chest pain [Recovered/Resolved]
  - Asthenia [Recovered/Resolved]
  - Electrolyte imbalance [Recovered/Resolved]
  - Dyspnoea [Recovered/Resolved]
  - Anaemia [Unknown]

NARRATIVE: CASE EVENT DATE: 20181020
